FAERS Safety Report 19942689 (Version 1)
Quarter: 2021Q4

REPORT INFORMATION
  Report Type: Spontaneous
  Country: US (occurrence: US)
  Receive Date: 20211008
  Receipt Date: 20211008
  Transmission Date: 20220303
  Serious: No
  Sender: FDA-Public Use
  Company Number: None

PATIENT
  Sex: Female

DRUGS (1)
  1. PREDNISOLONE ACETATE [Suspect]
     Active Substance: PREDNISOLONE ACETATE
     Indication: Cataract operation
     Route: 047
     Dates: start: 20210914, end: 20211004

REACTIONS (1)
  - Intraocular pressure increased [None]

NARRATIVE: CASE EVENT DATE: 20211004
